FAERS Safety Report 8215428-1 (Version None)
Quarter: 2012Q1

REPORT INFORMATION
  Report Type: 
  Country: None (occurrence: None)
  Receive Date: 20120316
  Receipt Date: 20120307
  Transmission Date: 20120608
  Serious: Yes (Hospitalization, Other)
  Sender: FDA-Public Use
  Company Number: JP-ALLERGAN-1203429US

PATIENT
  Age: 71 Year
  Sex: Male

DRUGS (4)
  1. IPD [Suspect]
     Indication: SKIN DISORDER
     Dosage: UNK
     Route: 048
     Dates: start: 20111222, end: 20120120
  2. EPINASTINE HYDROCHLORIDE [Suspect]
     Indication: SKIN DISORDER
     Dosage: 20 MG, QD
     Route: 048
     Dates: start: 20111222, end: 20120104
  3. CONFATANIN [Suspect]
     Indication: PRODUCT USED FOR UNKNOWN INDICATION
     Dosage: 60 MG, UNK
     Route: 048
  4. EPINAZION [Suspect]
     Indication: SKIN DISORDER
     Dosage: 20 MG, QD
     Route: 048
     Dates: start: 20120105, end: 20120120

REACTIONS (6)
  - DECREASED APPETITE [None]
  - SEPSIS [None]
  - PROTHROMBIN TIME SHORTENED [None]
  - CHOLESTASIS [None]
  - PRURITUS [None]
  - EOSINOPHILIA [None]
